FAERS Safety Report 21353364 (Version 3)
Quarter: 2022Q4

REPORT INFORMATION
  Report Type: Report from Study
  Country: CA (occurrence: CA)
  Receive Date: 20220920
  Receipt Date: 20221014
  Transmission Date: 20230113
  Serious: Yes (Hospitalization)
  Sender: FDA-Public Use
  Company Number: CA-TAKEDA-2022TUS065066

PATIENT
  Age: 38 Year
  Sex: Female

DRUGS (6)
  1. VEDOLIZUMAB [Suspect]
     Active Substance: VEDOLIZUMAB
     Indication: Colitis ulcerative
     Dosage: 300 MILLIGRAM
     Route: 042
     Dates: start: 20210128
  2. VEDOLIZUMAB [Suspect]
     Active Substance: VEDOLIZUMAB
     Dosage: 300 MILLIGRAM, Q4WEEKS
     Route: 042
     Dates: start: 20211112
  3. VEDOLIZUMAB [Suspect]
     Active Substance: VEDOLIZUMAB
     Dosage: 300 MILLIGRAM, Q4WEEKS
     Route: 042
  4. Salofalk [Concomitant]
     Dosage: 500 MILLIGRAM
     Dates: start: 200501, end: 200802
  5. Salofalk [Concomitant]
     Dosage: 500 MILLIGRAM
     Dates: start: 2012
  6. ENTOCORT [Concomitant]
     Active Substance: BUDESONIDE
     Dosage: 3 MILLIGRAM
     Route: 048

REACTIONS (3)
  - Popliteal artery entrapment syndrome [Unknown]
  - Post procedural complication [Unknown]
  - Off label use [Unknown]

NARRATIVE: CASE EVENT DATE: 20211112
